FAERS Safety Report 9203763 (Version 1)
Quarter: 2013Q1

REPORT INFORMATION
  Report Type: Spontaneous
  Country: US (occurrence: None)
  Receive Date: 20120709
  Receipt Date: 20120709
  Transmission Date: 20140127
  Serious: Yes (Hospitalization)
  Sender: FDA-Public Use
  Company Number: PHEH2011US008661

PATIENT
  Sex: Male

DRUGS (1)
  1. GLEEVEC (IMATINIB) [Suspect]
     Indication: SOFT TISSUE CANCER
     Route: 048
     Dates: start: 20110520

REACTIONS (2)
  - Haemoglobin decreased [None]
  - White blood cell count decreased [None]
